FAERS Safety Report 21233964 (Version 1)
Quarter: 2022Q3

REPORT INFORMATION
  Report Type: Spontaneous
  Country: AU (occurrence: AU)
  Receive Date: 20220819
  Receipt Date: 20220819
  Transmission Date: 20221027
  Serious: Yes (Other)
  Sender: FDA-Public Use
  Company Number: AU-TEVA-2022-AU-2065290

PATIENT
  Age: 60 Year
  Sex: Female

DRUGS (4)
  1. RASAGILINE MESYLATE [Suspect]
     Active Substance: RASAGILINE MESYLATE
     Indication: Product used for unknown indication
     Route: 065
  2. BENSERAZIDE [Suspect]
     Active Substance: BENSERAZIDE
     Indication: Product used for unknown indication
     Route: 065
  3. LEVODOPA [Suspect]
     Active Substance: LEVODOPA
     Indication: Product used for unknown indication
     Route: 065
  4. PRAMIPEXOLE [Suspect]
     Active Substance: PRAMIPEXOLE
     Indication: Product used for unknown indication
     Route: 065

REACTIONS (1)
  - Colitis microscopic [Unknown]
